FAERS Safety Report 25870829 (Version 2)
Quarter: 2025Q4

REPORT INFORMATION
  Report Type: Report from Study
  Country: US (occurrence: US)
  Receive Date: 20251001
  Receipt Date: 20251002
  Transmission Date: 20260118
  Serious: Yes (Death)
  Sender: ABBVIE
  Company Number: US-ABBVIE-6483360

PATIENT
  Age: 70 Year
  Sex: Female

DRUGS (1)
  1. VYALEV [Suspect]
     Active Substance: FOSCARBIDOPA\FOSLEVODOPA
     Indication: Parkinson^s disease
     Route: 058
     Dates: start: 20250522, end: 20250924

REACTIONS (3)
  - Fall [Fatal]
  - Parkinson^s disease [Fatal]
  - Pelvic fracture [Fatal]

NARRATIVE: CASE EVENT DATE: 20250901
